FAERS Safety Report 5330406-8 (Version None)
Quarter: 2007Q2

REPORT INFORMATION
  Report Type: 
  Country: None (occurrence: None)
  Receive Date: 20070521
  Receipt Date: 20070509
  Transmission Date: 20071010
  Serious: Yes (Hospitalization)
  Sender: FDA-Public Use
  Company Number: JP-PFIZER INC-2007027621

PATIENT
  Sex: Female
  Weight: 58 kg

DRUGS (6)
  1. SALAZOPYRIN [Suspect]
     Indication: COLITIS ULCERATIVE
     Dosage: DAILY DOSE:4GRAM
     Route: 048
     Dates: start: 20070302, end: 20070324
  2. MESALAZINE [Concomitant]
     Indication: COLITIS ULCERATIVE
  3. TRANCOLON [Concomitant]
     Route: 048
     Dates: start: 20050501, end: 20070324
  4. CYLOCK [Concomitant]
     Route: 048
     Dates: start: 20061218, end: 20070324
  5. ASCOMP [Concomitant]
     Route: 048
     Dates: start: 20061218, end: 20070324
  6. ERISPAN [Concomitant]
     Route: 048
     Dates: start: 20061218, end: 20070324

REACTIONS (3)
  - DRUG RASH WITH EOSINOPHILIA AND SYSTEMIC SYMPTOMS [None]
  - INFECTIOUS MONONUCLEOSIS [None]
  - PNEUMONIA [None]
